FAERS Safety Report 19859577 (Version 1)
Quarter: 2021Q3

REPORT INFORMATION
  Report Type: Spontaneous
  Country: US (occurrence: US)
  Receive Date: 20210920
  Receipt Date: 20210920
  Transmission Date: 20211014
  Serious: No
  Sender: FDA-Public Use
  Company Number: None

PATIENT
  Age: 37 Year
  Sex: Female
  Weight: 127.35 kg

DRUGS (4)
  1. IMDEVIMAB. [Suspect]
     Active Substance: IMDEVIMAB
     Indication: COVID-19
     Dosage: ?          OTHER FREQUENCY:ONCE;?
     Route: 041
     Dates: start: 20210916, end: 20210916
  2. CASIRIVIMAB. [Suspect]
     Active Substance: CASIRIVIMAB
     Indication: COVID-19
     Dosage: ?          OTHER FREQUENCY:ONCE;?
     Route: 041
     Dates: start: 20210915, end: 20210915
  3. REGEN10933 [Concomitant]
     Dates: start: 20210915, end: 20210915
  4. REGEN10987 [Concomitant]
     Dates: start: 20210916, end: 20210916

REACTIONS (3)
  - Product administration error [None]
  - Product label confusion [None]
  - Product communication issue [None]

NARRATIVE: CASE EVENT DATE: 20210915
